FAERS Safety Report 5789338-3 (Version None)
Quarter: 2008Q2

REPORT INFORMATION
  Report Type: 
  Country: None (occurrence: None)
  Receive Date: 20080626
  Receipt Date: 20080623
  Transmission Date: 20081010
  Serious: Yes (Other)
  Sender: FDA-Public Use
  Company Number: IE-MERCK-0806GBR00097

PATIENT
  Age: 35 Year
  Sex: Male

DRUGS (1)
  1. SINGULAIR [Suspect]
     Indication: SINUSITIS
     Route: 048

REACTIONS (2)
  - AFFECTIVE DISORDER [None]
  - DEPRESSION [None]
